FAERS Safety Report 5997819-2 (Version None)
Quarter: 2008Q4

REPORT INFORMATION
  Report Type: 
  Country: None (occurrence: None)
  Receive Date: 20081212
  Receipt Date: 20081125
  Transmission Date: 20090506
  Serious: Yes (Hospitalization, Other)
  Sender: FDA-Public Use
  Company Number: US-ABBOTT-08P-163-0489764-00

PATIENT
  Sex: Female
  Weight: 63.56 kg

DRUGS (4)
  1. HUMIRA [Suspect]
     Indication: RHEUMATOID ARTHRITIS
  2. METHOTREXATE [Suspect]
     Indication: RHEUMATOID ARTHRITIS
  3. VERAPAMIL [Concomitant]
     Indication: HYPERTENSION
  4. LABETALOL HCL [Concomitant]
     Indication: HYPERTENSION

REACTIONS (3)
  - INJECTION SITE HAEMATOMA [None]
  - RASH MACULAR [None]
  - RHEUMATOID ARTHRITIS [None]
